FAERS Safety Report 4361151-3 (Version None)
Quarter: 2004Q2

REPORT INFORMATION
  Report Type: 
  Country: None (occurrence: None)
  Receive Date: 20040511
  Receipt Date: 20031021
  Transmission Date: 20050107
  Serious: Yes (Hospitalization)
  Sender: FDA-Public Use
  Company Number: USA031048735

PATIENT
  Age: 36 Year
  Sex: Female
  Weight: 52 kg

DRUGS (4)
  1. ZYPREXA [Suspect]
     Indication: DISTURBANCE IN ATTENTION
     Dosage: 10 MG
     Dates: start: 19980101, end: 20030101
  2. PROZAC [Suspect]
     Indication: DEPRESSION
  3. EFFEXOR XR [Concomitant]
  4. GEODON [Concomitant]

REACTIONS (6)
  - DEPRESSION [None]
  - DYSKINESIA [None]
  - MIDDLE INSOMNIA [None]
  - MOVEMENT DISORDER [None]
  - SUICIDAL IDEATION [None]
  - WEIGHT INCREASED [None]
